FAERS Safety Report 9365016 (Version 1)
Quarter: 2013Q2

REPORT INFORMATION
  Report Type: Spontaneous
  Country: US (occurrence: US)
  Receive Date: 20130624
  Receipt Date: 20130624
  Transmission Date: 20140414
  Serious: No
  Sender: FDA-Public Use
  Company Number: US-PFIZER INC-2013187012

PATIENT
  Age: 25 Year
  Sex: Male
  Weight: 81.63 kg

DRUGS (5)
  1. NEURONTIN [Suspect]
     Indication: NECK PAIN
     Dosage: 100 MG, 3X/DAY
     Dates: start: 2013
  2. NEURONTIN [Suspect]
     Indication: BACK PAIN
  3. LORTAB [Concomitant]
     Indication: BACK PAIN
     Dosage: 7.5 MG, EVERY 6 HOURS
  4. LORTAB [Concomitant]
     Indication: NECK PAIN
  5. PROZAC [Concomitant]
     Indication: DEPRESSION
     Dosage: 40 MG, 1X/DAY

REACTIONS (4)
  - Intentional drug misuse [Unknown]
  - Drug ineffective [Unknown]
  - Somnolence [Unknown]
  - Feeling abnormal [Unknown]
